FAERS Safety Report 6981604-9 (Version None)
Quarter: 2010Q3

REPORT INFORMATION
  Report Type: 
  Country: None (occurrence: None)
  Receive Date: 20100914
  Receipt Date: 20090916
  Transmission Date: 20110219
  Serious: No
  Sender: FDA-Public Use
  Company Number: US-PFIZER INC-2009258581

PATIENT
  Sex: Female
  Weight: 108.9 kg

DRUGS (5)
  1. LYRICA [Suspect]
     Indication: FIBROMYALGIA
     Dosage: 75 MG, 2X/DAY
     Route: 048
     Dates: start: 20090101, end: 20090801
  2. ATENOLOL [Concomitant]
     Indication: HYPERTENSION
     Dosage: 50 MG, UNK
     Route: 048
  3. METHOCARBAMOL [Concomitant]
     Indication: FIBROMYALGIA
     Dosage: 750 MG, 3X/DAY
     Route: 048
  4. OMEPRAZOLE [Concomitant]
     Dosage: 50 MG, UNK
     Route: 048
  5. LORAZEPAM [Concomitant]
     Indication: FIBROMYALGIA
     Dosage: 1 MG, AS NEEDED
     Route: 048

REACTIONS (3)
  - DISORIENTATION [None]
  - FEELING ABNORMAL [None]
  - WEIGHT INCREASED [None]
